FAERS Safety Report 7721842-0 (Version None)
Quarter: 2011Q3

REPORT INFORMATION
  Report Type: 
  Country: None (occurrence: None)
  Receive Date: 20110831
  Receipt Date: 20110823
  Transmission Date: 20111222
  Serious: Yes (Other)
  Sender: FDA-Public Use
  Company Number: MX-BRISTOL-MYERS SQUIBB COMPANY-16001422

PATIENT
  Age: 60 Year
  Sex: Female
  Weight: 69 kg

DRUGS (3)
  1. TENORETIC 100 [Concomitant]
     Indication: HYPERTENSION
     Dosage: 1 DF : 1TAB,SINCE SEVERAL YEARS AGO
     Route: 048
     Dates: end: 20100701
  2. GALVUS [Concomitant]
     Indication: TYPE 2 DIABETES MELLITUS
     Dosage: 1 DF : 1 TAB
     Route: 048
     Dates: start: 20100101
  3. IRBESARTAN [Suspect]
     Indication: HYPERTENSION
     Route: 048
     Dates: start: 20100701, end: 20110201

REACTIONS (3)
  - DIZZINESS [None]
  - HYPERTENSION [None]
  - WEIGHT DECREASED [None]
